FAERS Safety Report 23730061 (Version 1)
Quarter: 2024Q2

REPORT INFORMATION
  Report Type: Other
  Country: US (occurrence: US)
  Receive Date: 20240411
  Receipt Date: 20240411
  Transmission Date: 20240716
  Serious: Yes (Death)
  Sender: FDA-Public Use
  Company Number: US-ALVOGEN-2024093482

PATIENT
  Age: 24 Year
  Sex: Male

DRUGS (3)
  1. CITALOPRAM [Suspect]
     Active Substance: CITALOPRAM\CITALOPRAM HYDROBROMIDE
     Indication: Drug abuse
     Route: 065
  2. FENTANYL [Suspect]
     Active Substance: FENTANYL\FENTANYL CITRATE
     Indication: Drug abuse
     Dosage: (NON-PRESCRIPTION)
     Route: 065
  3. ALCOHOL [Suspect]
     Active Substance: ALCOHOL
     Indication: Drug abuse
     Dosage: (BEVERAGE)
     Route: 065

REACTIONS (2)
  - Drug abuse [Fatal]
  - Prescription drug used without a prescription [Unknown]
